FAERS Safety Report 6533536-8 (Version None)
Quarter: 2010Q1

REPORT INFORMATION
  Report Type: 
  Country: None (occurrence: None)
  Receive Date: 20100111
  Receipt Date: 20100105
  Transmission Date: 20100710
  Serious: Yes (Other)
  Sender: FDA-Public Use
  Company Number: AU-JNJCH-2009032815

PATIENT
  Sex: Male

DRUGS (1)
  1. PSEUDOEPHEDRINE HCL [Suspect]
     Indication: DRUG USE FOR UNKNOWN INDICATION
     Dosage: TEXT:NO DRUG GIVEN

REACTIONS (3)
  - BLOOD PRESSURE INCREASED [None]
  - IDIOSYNCRATIC DRUG REACTION [None]
  - LOSS OF CONSCIOUSNESS [None]
